FAERS Safety Report 10182253 (Version 2)
Quarter: 2014Q2

REPORT INFORMATION
  Report Type: Spontaneous
  Country: PT (occurrence: PT)
  Receive Date: 20140520
  Receipt Date: 20140520
  Transmission Date: 20141212
  Serious: Yes (Hospitalization)
  Sender: FDA-Public Use
  Company Number: PT-ACCORD-023278

PATIENT
  Age: 70 Year
  Sex: Male

DRUGS (7)
  1. CLOPIDOGREL [Suspect]
     Indication: STENT PLACEMENT
     Dosage: ONE WEEK LATER CONTINUOUS ADMINISTRATION GIVEN AND 24 HOURS AFTER SINGLE DOSE GIVEN.
  2. INDAPAMIDE/INDAPAMIDE HEMIHYDRATE [Concomitant]
  3. CARVEDILOL [Concomitant]
  4. SIMVASTATIN [Concomitant]
  5. NITRATES [Concomitant]
  6. ACETYLSALICYLATE CALCIUM/ACETYLSALICYLATE COPPER/ACETYLSALICYLATE LYSINE/ACETYLSALICYLATE SODIUM/ACE [Concomitant]
  7. RAMIPRIL [Concomitant]

REACTIONS (5)
  - Rash erythematous [Recovered/Resolved]
  - Arthralgia [Recovered/Resolved]
  - Swelling [Recovered/Resolved]
  - Dermatitis [Recovered/Resolved]
  - Type IV hypersensitivity reaction [Recovered/Resolved]
